FAERS Safety Report 7380534-0 (Version None)
Quarter: 2011Q1

REPORT INFORMATION
  Report Type: 
  Country: None (occurrence: None)
  Receive Date: 20110321
  Receipt Date: 20090815
  Transmission Date: 20110831
  Serious: Yes (Death, Life-Threatening, Disabling)
  Sender: FDA-Public Use
  Company Number: AUR-APL-2011-00632

PATIENT
  Age: 56 Year
  Sex: Male

DRUGS (8)
  1. MAGE3-AS15-ASCI [Suspect]
     Indication: NON-SMALL CELL LUNG CANCER
     Dosage: 300IU, IM
     Route: 030
     Dates: start: 20090701, end: 20090701
  2. OXYCODONE [Suspect]
     Indication: BACK PAIN
     Dosage: ORAL
     Route: 048
     Dates: start: 20090428, end: 20090702
  3. TEMAZEPAM [Suspect]
     Indication: INSOMNIA
     Dosage: 15 MG, ORAL
     Route: 048
     Dates: start: 20090401, end: 20090702
  4. PF-03512676 [Suspect]
     Indication: NON-SMALL CELL LUNG CANCER
     Dosage: 300IU-IM
     Route: 030
     Dates: start: 20090701, end: 20090701
  5. OXYCODONE [Suspect]
     Indication: BACK PAIN
     Dosage: ORAL
     Route: 048
     Dates: start: 20090618, end: 20090702
  6. TRAMADOL [Suspect]
     Indication: PAIN
     Dosage: ORAL
     Route: 048
     Dates: start: 20080926, end: 20090702
  7. CEFTRIAXONE [Suspect]
     Indication: PNEUMONIA
     Dosage: 2G-UN-IV
     Route: 042
     Dates: start: 20090630, end: 20090630
  8. MOXIFLOXACIN [Suspect]
     Indication: PNEUMONIA
     Dosage: 400 MG, ORAL
     Route: 048
     Dates: start: 20090629, end: 20090702

REACTIONS (7)
  - CORONARY ARTERY STENOSIS [None]
  - EMPYEMA [None]
  - ARTERIOSCLEROSIS [None]
  - PNEUMONIA [None]
  - CARDIOMEGALY [None]
  - VENTRICULAR HYPERTROPHY [None]
  - CHOLELITHIASIS [None]
